FAERS Safety Report 9394378 (Version 3)
Quarter: 2014Q1

REPORT INFORMATION
  Report Type: Spontaneous
  Country: AR (occurrence: AR)
  Receive Date: 20130711
  Receipt Date: 20140130
  Transmission Date: 20141002
  Serious: Yes (Hospitalization, Other)
  Sender: FDA-Public Use
  Company Number: AR-AMGEN-ARGSP2013048081

PATIENT
  Age: 51 Year
  Sex: Female

DRUGS (4)
  1. ENBREL [Suspect]
     Indication: RHEUMATOID ARTHRITIS
     Dosage: 50 MG, WEEKLY
     Route: 065
     Dates: start: 20100423, end: 201207
  2. CORTIPYREN B [Concomitant]
     Dosage: UNK
  3. LEFLUNOMIDE [Concomitant]
     Dosage: UNK
  4. OMEPRAZOLE [Concomitant]
     Dosage: UNK

REACTIONS (7)
  - Impaired healing [Recovered/Resolved]
  - Thrombosis [Recovered/Resolved]
  - Weight decreased [Recovered/Resolved]
  - Decreased immune responsiveness [Recovered/Resolved]
  - Vomiting [Recovering/Resolving]
  - Osteoarthritis [Recovered/Resolved]
  - Nosocomial infection [Recovered/Resolved]
